FAERS Safety Report 7961133 (Version 2)
Quarter: 2013Q3

REPORT INFORMATION
  Report Type: Spontaneous
  Country: US (occurrence: US)
  Receive Date: 20110525
  Receipt Date: 20130809
  Transmission Date: 20140515
  Serious: No
  Sender: FDA-Public Use
  Company Number: US-AMGEN-USASP2011019600

PATIENT
  Age: 48 Year
  Sex: Female
  Weight: 51.8 kg

DRUGS (3)
  1. NPLATE [Suspect]
     Indication: IMMUNE THROMBOCYTOPENIC PURPURA
     Dosage: 2 MUG/KG, QWK
     Route: 058
     Dates: start: 201009
  2. RITUXIMAB [Concomitant]
     Dosage: UNK
     Dates: start: 20091207
  3. IVIGLOB-EX [Concomitant]
     Dosage: UNK
     Dates: start: 20091204

REACTIONS (5)
  - Injection site pain [Unknown]
  - Scar [Unknown]
  - Procedural pain [Unknown]
  - Mobility decreased [Unknown]
  - Headache [Unknown]
